FAERS Safety Report 15984397 (Version 1)
Quarter: 2019Q1

REPORT INFORMATION
  Report Type: Report from Study
  Country: US (occurrence: US)
  Receive Date: 20190220
  Receipt Date: 20190220
  Transmission Date: 20190418
  Serious: Yes (Other)
  Sender: FDA-Public Use
  Company Number: US-AXELLIA-002246

PATIENT

DRUGS (1)
  1. POLYMYXIN B. [Suspect]
     Active Substance: POLYMYXIN B
     Indication: PRODUCT USED FOR UNKNOWN INDICATION
     Dosage: 25,000-U/KG LOADING DOSE AND THEN 12,500 TO 15,000 U/KG EVERY 12 H
     Route: 042

REACTIONS (1)
  - Acute kidney injury [Recovered/Resolved]
